FAERS Safety Report 10332897 (Version 1)
Quarter: 2014Q3

REPORT INFORMATION
  Report Type: Report from Study
  Country: BR (occurrence: BR)
  Receive Date: 20140722
  Receipt Date: 20140722
  Transmission Date: 20150326
  Serious: Yes (Other)
  Sender: FDA-Public Use
  Company Number: PHHY2014BR088727

PATIENT
  Sex: Female
  Weight: 74 kg

DRUGS (3)
  1. ACLASTA [Suspect]
     Active Substance: ZOLEDRONIC ACID
     Indication: OSTEOPOROSIS
     Dosage: UNK UKN, ONCE EVERY YEAR
     Route: 042
     Dates: start: 2012
  2. RANITIDINE [Concomitant]
     Active Substance: RANITIDINE\RANITIDINE HYDROCHLORIDE
     Indication: GASTRIC DISORDER
     Dosage: 2 DF, DAILY
     Dates: start: 2013
  3. LOSARTAN [Concomitant]
     Active Substance: LOSARTAN
     Indication: HYPERTENSION
     Dosage: 2 DF, DAILY
     Dates: start: 2013

REACTIONS (6)
  - Diabetes mellitus [Unknown]
  - Rheumatic disorder [Unknown]
  - Arthralgia [Unknown]
  - Bursitis [Unknown]
  - Bone pain [Unknown]
  - Pain [Unknown]
